FAERS Safety Report 15995331 (Version 5)
Quarter: 2020Q3

REPORT INFORMATION
  Report Type: Report from Study
  Country: JP (occurrence: JP)
  Receive Date: 20190222
  Receipt Date: 20200827
  Transmission Date: 20201102
  Serious: Yes (Life-Threatening, Hospitalization)
  Sender: FDA-Public Use
  Company Number: JP-GLAXOSMITHKLINE-JP2019JPN028833

PATIENT
  Age: 52 Year
  Sex: Female
  Weight: 39 kg

DRUGS (17)
  1. RISUMIC [Concomitant]
     Active Substance: AMEZINIUM METILSULFATE
     Dosage: 30 MG, UNK(ONLY AT TIME OF DIALYSIS)
  2. ONEALFA [Concomitant]
     Active Substance: ALFACALCIDOL
     Dosage: UNK
  3. PREDNISOLONE. [Concomitant]
     Active Substance: PREDNISOLONE
     Indication: SYSTEMIC LUPUS ERYTHEMATOSUS
     Dosage: 5 MG, 1D
     Dates: start: 20180424
  4. CICLOSPORIN [Concomitant]
     Active Substance: CYCLOSPORINE
     Indication: SYSTEMIC LUPUS ERYTHEMATOSUS
     Dosage: UNK
  5. FOSRENOL [Concomitant]
     Active Substance: LANTHANUM CARBONATE
     Dosage: 1500 MG, 1D
  6. PIARLE SYRUP 65% [Concomitant]
     Dosage: 90 ML, 1D
  7. RENAGEL [Concomitant]
     Active Substance: SEVELAMER HYDROCHLORIDE
     Dosage: UNK
  8. RABEPRAZOLE SODIUM. [Concomitant]
     Active Substance: RABEPRAZOLE SODIUM
     Indication: PROPHYLAXIS AGAINST GASTROINTESTINAL ULCER
     Dosage: 10 MG, 1D
  9. BELIMUMAB SUBCUTANEOUS [Suspect]
     Active Substance: BELIMUMAB
     Indication: SYSTEMIC LUPUS ERYTHEMATOSUS
     Dosage: 200 MG, 1D
     Route: 058
     Dates: start: 20190205, end: 20190205
  10. WARFARIN (JAPANESE TRADENAME) [Suspect]
     Active Substance: WARFARIN POTASSIUM
     Dosage: UNK UNK, 1D
     Route: 048
     Dates: start: 20190214
  11. ALOSENN [Concomitant]
     Indication: CONSTIPATION
     Dosage: 6 G, 1D
  12. DAIKENCHUTO [Concomitant]
     Active Substance: HERBALS
     Dosage: 3 DF, 1D
  13. NEORAL [Concomitant]
     Active Substance: CYCLOSPORINE
     Indication: SYSTEMIC LUPUS ERYTHEMATOSUS
     Dosage: 100 MG, 1D
  14. TEPRENONE [Concomitant]
     Active Substance: TEPRENONE
     Indication: PROPHYLAXIS AGAINST GASTROINTESTINAL ULCER
     Dosage: 3 DF, 1D
  15. GASCON (DIMETHICONE) [Concomitant]
     Active Substance: DIMETHICONE
     Dosage: 120 MG, 1D
  16. PHOSBLOCK [Concomitant]
     Active Substance: FERRIC HYDROXIDE
     Dosage: 2250 MG, 1D
  17. WARFARIN (JAPANESE TRADENAME) [Suspect]
     Active Substance: WARFARIN POTASSIUM
     Indication: AORTIC VALVE REPLACEMENT
     Dosage: 2 MG, 1D
     Route: 048
     Dates: start: 20141030, end: 20190206

REACTIONS (1)
  - Haematoma [Recovered/Resolved]

NARRATIVE: CASE EVENT DATE: 20190205
